FAERS Safety Report 7780934-0 (Version None)
Quarter: 2011Q3

REPORT INFORMATION
  Report Type: 
  Country: None (occurrence: None)
  Receive Date: 20110927
  Receipt Date: 20110923
  Transmission Date: 20111222
  Serious: Yes (Other)
  Sender: FDA-Public Use
  Company Number: SE-JNJFOC-20110704468

PATIENT
  Age: 69 Year
  Sex: Male

DRUGS (4)
  1. STELARA [Suspect]
     Indication: ARTHRITIS
     Route: 058
     Dates: start: 20110621
  2. STELARA [Suspect]
     Indication: PSORIASIS
     Route: 058
     Dates: start: 20110621
  3. ENBREL [Suspect]
     Indication: PRODUCT USED FOR UNKNOWN INDICATION
     Dates: end: 20110601
  4. ENBREL [Suspect]

REACTIONS (2)
  - GUILLAIN-BARRE SYNDROME [None]
  - WEIGHT DECREASED [None]
